FAERS Safety Report 15255990 (Version 2)
Quarter: 2018Q3

REPORT INFORMATION
  Report Type: Spontaneous
  Country: LS (occurrence: LS)
  Receive Date: 20180808
  Receipt Date: 20180808
  Transmission Date: 20181010
  Serious: Yes (Death, Hospitalization, Other)
  Sender: FDA-Public Use
  Company Number: PHHY2018LS063611

PATIENT
  Age: 26 Year
  Sex: Male
  Weight: 45 kg

DRUGS (22)
  1. PYRAZINAMIDE. [Suspect]
     Active Substance: PYRAZINAMIDE
     Dosage: UNK
     Route: 065
     Dates: end: 20180403
  2. MOXIFLOXACIN. [Suspect]
     Active Substance: MOXIFLOXACIN
     Indication: TUBERCULOSIS
     Dosage: 400 MG, QD
     Route: 048
     Dates: start: 20180212, end: 20180715
  3. MULTIPLE VITAMINS [Concomitant]
     Active Substance: VITAMINS
     Indication: TUBERCULOSIS
     Dosage: UNK
     Route: 065
     Dates: start: 20180205
  4. DIPHENHYDRAMINE. [Concomitant]
     Active Substance: DIPHENHYDRAMINE
     Indication: COUGH
     Dosage: UNK
     Route: 065
     Dates: start: 20180205, end: 20180212
  5. LEVOFLOXACIN. [Suspect]
     Active Substance: LEVOFLOXACIN
     Indication: TUBERCULOSIS
     Dosage: 750 MG, QD
     Route: 048
     Dates: start: 20180206
  6. PARA?AMINOSALICYLIC ACID [Suspect]
     Active Substance: AMINOSALICYLIC ACID
     Indication: TUBERCULOSIS
     Dosage: 8 MG, UNK
     Route: 048
     Dates: start: 20180214, end: 20180321
  7. PYRAZINAMIDE. [Suspect]
     Active Substance: PYRAZINAMIDE
     Dosage: 1600 MG, QD
     Route: 048
     Dates: start: 20180213, end: 20180321
  8. ZIDOVUDINE. [Suspect]
     Active Substance: ZIDOVUDINE
     Indication: HIV INFECTION
     Dosage: UNK
     Route: 065
     Dates: start: 20180713
  9. DELAMANID [Suspect]
     Active Substance: DELAMANID
     Indication: TUBERCULOSIS
     Dosage: 200 MG, QD
     Route: 048
     Dates: start: 20180206, end: 20180715
  10. PYRAZINAMIDE. [Suspect]
     Active Substance: PYRAZINAMIDE
     Indication: TUBERCULOSIS
     Dosage: 1600 MG, QD
     Route: 048
     Dates: start: 20180206, end: 20180212
  11. COTRIMOXAZOLE [Concomitant]
     Active Substance: SULFAMETHOXAZOLE\TRIMETHOPRIM
     Indication: HIV INFECTION
     Dosage: UNK
     Route: 065
     Dates: start: 20180205
  12. EFAVIRENZ. [Concomitant]
     Active Substance: EFAVIRENZ
     Indication: HIV INFECTION
     Dosage: UNK
     Route: 065
     Dates: start: 20180216, end: 20180713
  13. CLOFAZIMINE [Suspect]
     Active Substance: CLOFAZIMINE
     Indication: TUBERCULOSIS
     Dosage: 100 MG, QD
     Route: 048
     Dates: start: 20180322, end: 20180712
  14. LAMIVUDINE. [Suspect]
     Active Substance: LAMIVUDINE
     Dosage: UNK
     Route: 065
     Dates: start: 20180713
  15. CYCLOSERINE. [Suspect]
     Active Substance: CYCLOSERINE
     Indication: TUBERCULOSIS
     Dosage: 500 MG, QD
     Route: 048
     Dates: start: 20180206, end: 20180212
  16. METOCLOPRAMIDE. [Concomitant]
     Active Substance: METOCLOPRAMIDE
     Indication: VOMITING
  17. LINEZOLID. [Suspect]
     Active Substance: LINEZOLID
     Indication: TUBERCULOSIS
     Dosage: 600 MG, QD
     Route: 048
     Dates: start: 20180206, end: 20180314
  18. PROTHIONAMIDE [Suspect]
     Active Substance: PROTIONAMIDE
     Indication: TUBERCULOSIS
     Dosage: 500 MG, QD
     Route: 048
     Dates: start: 20180206, end: 20180715
  19. TENOFOVIR [Concomitant]
     Active Substance: TENOFOVIR
     Indication: HIV INFECTION
     Dosage: UNK
     Route: 065
     Dates: start: 20180216, end: 20180713
  20. METOCLOPRAMIDE. [Concomitant]
     Active Substance: METOCLOPRAMIDE
     Indication: NAUSEA
     Dosage: UNK
     Route: 065
  21. LAMIVUDINE. [Suspect]
     Active Substance: LAMIVUDINE
     Indication: HIV INFECTION
     Dosage: 300 MG, QD
     Route: 048
     Dates: start: 20180216
  22. LINEZOLID. [Suspect]
     Active Substance: LINEZOLID
     Dosage: UNK
     Route: 065
     Dates: end: 20180715

REACTIONS (23)
  - Vomiting [Recovered/Resolved]
  - Hyperlactacidaemia [Unknown]
  - Dizziness [Unknown]
  - Intestinal ischaemia [Fatal]
  - Gastroenteritis [Unknown]
  - Metabolic acidosis [Fatal]
  - Dehydration [Recovering/Resolving]
  - Syncope [Unknown]
  - Tachycardia [Unknown]
  - Altered state of consciousness [Recovering/Resolving]
  - Aspartate aminotransferase increased [Unknown]
  - Alanine aminotransferase increased [Unknown]
  - Hypophagia [Unknown]
  - Pulmonary embolism [Unknown]
  - Hypotension [Unknown]
  - Tremor [Recovering/Resolving]
  - Hypokalaemia [Recovering/Resolving]
  - Feeling drunk [Recovering/Resolving]
  - Hypothyroidism [Unknown]
  - Oral herpes [Recovering/Resolving]
  - Vomiting [Fatal]
  - Pneumocystis jirovecii pneumonia [Unknown]
  - Gamma-glutamyltransferase increased [Unknown]

NARRATIVE: CASE EVENT DATE: 201802
